FAERS Safety Report 8554576-3 (Version None)
Quarter: 2012Q3

REPORT INFORMATION
  Report Type: 
  Country: None (occurrence: None)
  Receive Date: 20120731
  Receipt Date: 20120723
  Transmission Date: 20120928
  Serious: Yes (Hospitalization, Other)
  Sender: FDA-Public Use
  Company Number: CA-ABBOTT-12P-028-0942740-00

PATIENT
  Sex: Male
  Weight: 83.082 kg

DRUGS (1)
  1. LUPRON DEPOT [Suspect]
     Indication: PROSTATE CANCER
     Dates: start: 20110923, end: 20110923

REACTIONS (7)
  - METASTASES TO BONE [None]
  - MOBILITY DECREASED [None]
  - PAIN [None]
  - MALAISE [None]
  - UNEVALUABLE EVENT [None]
  - PROSTATE CANCER METASTATIC [None]
  - METASTATIC LYMPHOMA [None]
